FAERS Safety Report 10078740 (Version 1)
Quarter: 2014Q2

REPORT INFORMATION
  Report Type: Report from Study
  Country: GB (occurrence: GB)
  Receive Date: 20140415
  Receipt Date: 20140415
  Transmission Date: 20141212
  Serious: Yes (Hospitalization)
  Sender: FDA-Public Use
  Company Number: GB-INCYTE CORPORATION-2014IN000981

PATIENT
  Sex: Female

DRUGS (1)
  1. INC424 [Suspect]
     Dosage: 15 MG, BID
     Route: 048
     Dates: start: 20121102

REACTIONS (1)
  - Viral labyrinthitis [Recovered/Resolved]
